FAERS Safety Report 5891908-9 (Version None)
Quarter: 2008Q3

REPORT INFORMATION
  Report Type: 
  Country: None (occurrence: None)
  Receive Date: 20080922
  Receipt Date: 20080911
  Transmission Date: 20090109
  Serious: Yes (Hospitalization)
  Sender: FDA-Public Use
  Company Number: US-ELI_LILLY_AND_COMPANY-US200809004068

PATIENT
  Age: 14 Year
  Sex: Female

DRUGS (3)
  1. CYMBALTA [Suspect]
     Indication: PANIC ATTACK
     Dosage: UNK, UNKNOWN
     Route: 065
     Dates: start: 20080701
  2. LAMICTAL [Concomitant]
     Dosage: 200 MG, DAILY (1/D)
     Route: 065
  3. PROPRANOLOL [Concomitant]
     Dosage: 80 MG, DAILY (1/D)
     Route: 065

REACTIONS (3)
  - DEPRESSION [None]
  - DRUG INEFFECTIVE [None]
  - HOSPITALISATION [None]
